FAERS Safety Report 6425851-3 (Version None)
Quarter: 2009Q4

REPORT INFORMATION
  Report Type: 
  Country: None (occurrence: None)
  Receive Date: 20091029
  Receipt Date: 20091015
  Transmission Date: 20100525
  Serious: Yes (Hospitalization)
  Sender: FDA-Public Use
  Company Number: 2009-4280

PATIENT
  Sex: Female

DRUGS (3)
  1. APOKYN [Suspect]
     Indication: DRUG USE FOR UNKNOWN INDICATION
     Dosage: 0.4 ML, NOT REPORTED, UNKNOWN 0.2 ML, NOT REPORTED, UNKNOWN
  2. APOKYN [Suspect]
     Indication: PARKINSON'S DISEASE
     Dosage: 0.4 ML, NOT REPORTED, UNKNOWN 0.2 ML, NOT REPORTED, UNKNOWN
  3. BLOOD PRESSURE MEDICATION (ALL OTHER THERAPEUTIC PRODUCTS) [Concomitant]

REACTIONS (1)
  - HYPERTENSION [None]
